FAERS Safety Report 21914974 (Version 1)
Quarter: 2023Q1

REPORT INFORMATION
  Report Type: Spontaneous
  Country: US (occurrence: US)
  Receive Date: 20230126
  Receipt Date: 20230126
  Transmission Date: 20230417
  Serious: No
  Sender: FDA-Public Use
  Company Number: US-CATALYST PHARMACEUTICALS, INC-2022CAT00478

PATIENT
  Age: 65 Year
  Sex: Male
  Weight: 72.562 kg

DRUGS (10)
  1. FIRDAPSE [Suspect]
     Active Substance: AMIFAMPRIDINE PHOSPHATE
     Indication: Myasthenic syndrome
     Dosage: 80 MG (8 TABLETS) DAILY (6 AM, 10 AM, 12 PM, 2 PM, 4 PM, 6 PM, 10 PM)
     Route: 048
     Dates: start: 2018
  2. MESTINON [Concomitant]
     Active Substance: PYRIDOSTIGMINE BROMIDE
     Dosage: 1/2 PILL, 8X/DAY WITH FIRDAPSE
  3. UNKNOWN PURPLE PILL [Concomitant]
  4. PREDNISONE [Concomitant]
     Active Substance: PREDNISONE
     Dosage: 15
  5. LOMOTIL [Concomitant]
     Active Substance: ATROPINE SULFATE\DIPHENOXYLATE HYDROCHLORIDE
     Dosage: 5 PILLS
  6. UNSPECIFIED THYROID PILLS [Concomitant]
  7. UNSPECIFIED OSTEOPOROSIS MEDICATION [Concomitant]
     Dosage: UNK, 1X/MONTH
  8. COVID VACCINE [Concomitant]
     Dosage: UNK
     Dates: start: 2021, end: 2021
  9. COVID VACCINE [Concomitant]
     Dosage: UNK
     Dates: start: 2021, end: 2021
  10. COVID VACCINE [Concomitant]
     Dosage: BOOSTER
     Dates: start: 2021, end: 2021

REACTIONS (5)
  - COVID-19 [Recovered/Resolved]
  - Localised infection [Unknown]
  - Skin ulcer [Unknown]
  - Joint effusion [Recovered/Resolved]
  - Cough [Not Recovered/Not Resolved]

NARRATIVE: CASE EVENT DATE: 20211001
